FAERS Safety Report 19968827 (Version 1)
Quarter: 2021Q4

REPORT INFORMATION
  Report Type: Spontaneous
  Country: US (occurrence: US)
  Receive Date: 20211019
  Receipt Date: 20211019
  Transmission Date: 20220303
  Serious: Yes (Hospitalization)
  Sender: FDA-Public Use
  Company Number: None

PATIENT
  Sex: Female

DRUGS (3)
  1. FORTEO [Suspect]
     Active Substance: TERIPARATIDE
     Indication: Senile osteoporosis
     Route: 058
     Dates: start: 20210624
  2. NITROFURANTOIN [Concomitant]
     Active Substance: NITROFURANTOIN
  3. TRIAMCINOLON [Concomitant]

REACTIONS (5)
  - Therapy interrupted [None]
  - Dizziness [None]
  - Hypertension [None]
  - Fatigue [None]
  - Heart rate increased [None]
